FAERS Safety Report 7180478-3 (Version None)
Quarter: 2010Q4

REPORT INFORMATION
  Report Type: 
  Country: None (occurrence: None)
  Receive Date: 20101221
  Receipt Date: 20101217
  Transmission Date: 20110411
  Serious: Yes (Life-Threatening, Hospitalization, Other)
  Sender: FDA-Public Use
  Company Number: JP-PFIZER INC-JP-WYE-H18409610

PATIENT
  Age: 52 Year
  Sex: Female
  Weight: 57 kg

DRUGS (2)
  1. PREMARIN [Suspect]
     Indication: OESTROGEN REPLACEMENT THERAPY
     Dosage: 0.625 MG, 2X/DAY
     Route: 048
     Dates: start: 19981224
  2. PREMARIN [Suspect]
     Dosage: 0.625 MG, 4X/DAY
     Route: 048
     Dates: start: 19991224

REACTIONS (1)
  - VAGINAL CANCER METASTATIC [None]
